FAERS Safety Report 22072121 (Version 3)
Quarter: 2023Q2

REPORT INFORMATION
  Report Type: Report from Study
  Country: IL (occurrence: IL)
  Receive Date: 20230308
  Receipt Date: 20230410
  Transmission Date: 20230721
  Serious: Yes (Hospitalization)
  Sender: FDA-Public Use
  Company Number: IL-ABBVIE-4323263

PATIENT
  Sex: Male

DRUGS (2)
  1. CARBIDOPA\LEVODOPA [Suspect]
     Active Substance: CARBIDOPA\LEVODOPA
     Indication: Parkinson^s disease
     Route: 050
     Dates: start: 20160507
  2. CARBIDOPA\LEVODOPA [Suspect]
     Active Substance: CARBIDOPA\LEVODOPA
     Dosage: MORNING DOSE 5.5ML, CONTINUOUS DOSE 2.8ML/HOUR, EXTRA DOSE 1.5ML
     Route: 050

REACTIONS (14)
  - Dysuria [Unknown]
  - Cognitive disorder [Not Recovered/Not Resolved]
  - Calculus bladder [Not Recovered/Not Resolved]
  - General physical condition abnormal [Unknown]
  - Urinary tract infection [Recovering/Resolving]
  - Blood pressure increased [Unknown]
  - Restlessness [Recovering/Resolving]
  - Asthenia [Unknown]
  - Communication disorder [Not Recovered/Not Resolved]
  - Dizziness [Not Recovered/Not Resolved]
  - Movement disorder [Recovering/Resolving]
  - Decreased gait velocity [Not Recovered/Not Resolved]
  - Dysstasia [Not Recovered/Not Resolved]
  - Mobility decreased [Unknown]
